FAERS Safety Report 5721493-3 (Version None)
Quarter: 2008Q2

REPORT INFORMATION
  Report Type: 
  Country: None (occurrence: None)
  Receive Date: 20080428
  Receipt Date: 20080428
  Transmission Date: 20081010
  Serious: Yes (Other)
  Sender: FDA-Public Use
  Company Number: None

PATIENT
  Age: 36 Year
  Sex: Female
  Weight: 81.6475 kg

DRUGS (1)
  1. BUPROPION HCL [Suspect]
     Indication: DEPRESSION
     Dosage: ONE TABLET 3 TIMES DAILY PO
     Route: 048
     Dates: start: 20080313, end: 20080427

REACTIONS (8)
  - ARTHRALGIA [None]
  - CRYING [None]
  - DEPRESSION [None]
  - IMPAIRED WORK ABILITY [None]
  - IRRITABILITY [None]
  - MUSCLE SPASMS [None]
  - SUICIDAL IDEATION [None]
  - VIOLENCE-RELATED SYMPTOM [None]
